FAERS Safety Report 16463760 (Version 1)
Quarter: 2019Q2

REPORT INFORMATION
  Report Type: Spontaneous
  Country: ES (occurrence: ES)
  Receive Date: 20190621
  Receipt Date: 20190621
  Transmission Date: 20190711
  Serious: Yes (Hospitalization, Other)
  Sender: FDA-Public Use
  Company Number: ES-ASTRAZENECA-2019SE89069

PATIENT
  Age: 80 Year
  Sex: Female

DRUGS (5)
  1. PREDNISONE. [Interacting]
     Active Substance: PREDNISONE
     Route: 065
  2. VALSARTAN. [Interacting]
     Active Substance: VALSARTAN
     Route: 065
  3. METHOTREXATE. [Interacting]
     Active Substance: METHOTREXATE
     Indication: RHEUMATOID ARTHRITIS
     Dosage: 15 MG/WEEK DURING 115,9 MONTHS OF TREATMENT
     Route: 065
  4. DEXKETOPROFEN [Interacting]
     Active Substance: DEXKETOPROFEN
     Route: 065
  5. OMEPRAZOLE. [Suspect]
     Active Substance: OMEPRAZOLE
     Route: 048

REACTIONS (3)
  - Drug interaction [Unknown]
  - Pancytopenia [Unknown]
  - Mucosal inflammation [Unknown]
